FAERS Safety Report 5833988-2 (Version None)
Quarter: 2008Q3

REPORT INFORMATION
  Report Type: 
  Country: None (occurrence: None)
  Receive Date: 20080801
  Receipt Date: 20080801
  Transmission Date: 20090109
  Serious: Yes (Other)
  Sender: FDA-Public Use
  Company Number: None

PATIENT
  Age: 53 Year
  Sex: Female
  Weight: 101.1521 kg

DRUGS (1)
  1. METOPROLOL SUCCINATE EXTENDED RELEASE [Suspect]
     Indication: HYPERTENSION
     Dosage: TAKE ONE TABLET BY MOUTH DAILY ONCE A DAY PO
     Route: 048
     Dates: start: 20080718, end: 20080729

REACTIONS (12)
  - BALANCE DISORDER [None]
  - DIARRHOEA [None]
  - DISORIENTATION [None]
  - DIVERTICULUM [None]
  - GASTROINTESTINAL EROSION [None]
  - GASTROINTESTINAL PAIN [None]
  - HEART RATE INCREASED [None]
  - HYPERHIDROSIS [None]
  - INFLUENZA [None]
  - NAUSEA [None]
  - THERAPEUTIC PRODUCT CONTAMINATION [None]
  - VISION BLURRED [None]
